FAERS Safety Report 4805254-5 (Version None)
Quarter: 2005Q4

REPORT INFORMATION
  Report Type: 
  Country: None (occurrence: None)
  Receive Date: 20051020
  Receipt Date: 20050930
  Transmission Date: 20060501
  Serious: Yes (Hospitalization)
  Sender: FDA-Public Use
  Company Number: JP-MERCK-0510USA03526

PATIENT

DRUGS (1)
  1. PEPCID RPD [Suspect]
     Route: 048
     Dates: start: 20050901, end: 20050930

REACTIONS (2)
  - ENCEPHALOPATHY [None]
  - OVERDOSE [None]
